FAERS Safety Report 10617200 (Version 3)
Quarter: 2015Q1

REPORT INFORMATION
  Report Type: Spontaneous
  Country: US (occurrence: US)
  Receive Date: 20141201
  Receipt Date: 20150323
  Transmission Date: 20150720
  Serious: Yes (Hospitalization, Other)
  Sender: FDA-Public Use
  Company Number: US-BAYER-2014-174054

PATIENT
  Age: 27 Year
  Sex: Female

DRUGS (5)
  1. MIRENA [Suspect]
     Active Substance: LEVONORGESTREL
     Indication: CONTRACEPTION
     Dosage: 20 MCG/24HR, CONT
     Route: 015
     Dates: start: 20101213, end: 20120802
  2. LORATADINE. [Concomitant]
     Active Substance: LORATADINE
     Indication: HYPERSENSITIVITY
     Dosage: UNK
     Route: 048
     Dates: start: 201011
  3. ALBUTEROL. [Concomitant]
     Active Substance: ALBUTEROL
     Dosage: PRN
     Dates: start: 201207
  4. XANAX [Concomitant]
     Active Substance: ALPRAZOLAM
     Indication: ANXIETY
     Dosage: UNK
     Route: 048
     Dates: start: 201011
  5. CELEXA [Concomitant]
     Active Substance: CITALOPRAM HYDROBROMIDE

REACTIONS (13)
  - Uterine perforation [None]
  - Injury [None]
  - Device dislocation [None]
  - Anxiety [None]
  - Genital haemorrhage [None]
  - Depression [None]
  - Internal injury [None]
  - Medical device discomfort [None]
  - Pelvic pain [None]
  - Fear [None]
  - Abdominal pain [None]
  - Emotional distress [None]
  - Depressed mood [None]

NARRATIVE: CASE EVENT DATE: 20101220
